FAERS Safety Report 5427429-7 (Version None)
Quarter: 2007Q3

REPORT INFORMATION
  Report Type: 
  Country: None (occurrence: None)
  Receive Date: 20070828
  Receipt Date: 20070820
  Transmission Date: 20080115
  Serious: Yes (Other)
  Sender: FDA-Public Use
  Company Number: ES-ELI_LILLY_AND_COMPANY-US_030695528

PATIENT
  Sex: Male

DRUGS (2)
  1. GEMCITABINE HCL [Suspect]
     Indication: NEOPLASM
     Dosage: 3000 MG/M2, WEEKLY (1/W)
     Route: 042
  2. VINORELBINE [Concomitant]
     Indication: NEOPLASM
     Dosage: 30 MG/M2, WEEKLY (1/W)
     Route: 042

REACTIONS (1)
  - RECALL PHENOMENON [None]
